FAERS Safety Report 8851381 (Version 1)
Quarter: 2012Q4

REPORT INFORMATION
  Report Type: 
  Country: CH (occurrence: CH)
  Receive Date: 20121022
  Receipt Date: 20121022
  Transmission Date: 20130627
  Serious: Yes (Hospitalization, Other)
  Sender: FDA-Public Use
  Company Number: CH-AMGEN-CHESP2012066006

PATIENT
  Age: 51 Year
  Sex: Male

DRUGS (14)
  1. ENBREL [Suspect]
     Indication: PRODUCT USED FOR UNKNOWN INDICATION
     Dosage: 50 mg, qwk
     Route: 058
  2. ASPIRIN CARDIO [Concomitant]
     Dosage: 100 mg, 1x/day (1-0-0)
     Route: 048
  3. EXFORGE [Concomitant]
     Dosage: 10 mg / 160 mg, 1x/day (0-0-1)
     Route: 048
  4. TORASEMIDE [Concomitant]
     Dosage: 5 mg, as needed
     Route: 048
  5. SORTIS [Concomitant]
     Dosage: 10 mg, 1x/day (1-0-0)
     Route: 048
  6. DIAMICRON [Concomitant]
     Dosage: 60 mg, 1x/day (0.5-0-0)
     Route: 048
  7. NEXIUM                             /01479302/ [Concomitant]
     Dosage: 20 mg, 1x/day (1-0-0)
     Route: 048
  8. FOSAMAX [Concomitant]
     Dosage: 70 mg, weekly
     Route: 048
  9. CALCIMAGON-D3 [Concomitant]
     Dosage: 1 DF, 1x/day (0-1-0)
     Route: 048
  10. DAFALGAN [Concomitant]
     Dosage: 1 g, 3x/day (1-1-1)
     Route: 048
  11. TRAMAL [Concomitant]
     Dosage: 50 mg, as needed 1x/day
     Route: 048
  12. SPIRICORT [Concomitant]
     Dosage: 5 mg, 1x/day (1-0-0)
     Route: 061
  13. MYFORTIC [Concomitant]
     Dosage: 360 mg, 4x/day (2-0-2)
     Route: 048
  14. COVERSUM N [Concomitant]
     Dosage: 5 mg, qd
     Route: 048

REACTIONS (1)
  - Cerebral ischaemia [Recovered/Resolved]
